FAERS Safety Report 20057655 (Version 1)
Quarter: 2021Q4

REPORT INFORMATION
  Report Type: Spontaneous
  Country: GB (occurrence: GB)
  Receive Date: 20211111
  Receipt Date: 20211111
  Transmission Date: 20220304
  Serious: Yes (Other)
  Sender: FDA-Public Use
  Company Number: None

PATIENT
  Age: 55 Year
  Sex: Female
  Weight: 78 kg

DRUGS (4)
  1. FLUOXETINE [Suspect]
     Active Substance: FLUOXETINE HYDROCHLORIDE
     Indication: Mixed anxiety and depressive disorder
     Dosage: 20 MILLIGRAM, QD
     Dates: start: 20211007, end: 202110
  2. EVOREL [Concomitant]
     Indication: Hormone replacement therapy
     Dosage: 1 DOSAGE FORM, Q2W
     Dates: start: 20211007
  3. OTOMIZE [Concomitant]
     Indication: Ear pain
     Dosage: 5 MILLILITER, TID
     Route: 001
     Dates: start: 20210915, end: 20211028
  4. PROGESTERONE [Concomitant]
     Active Substance: PROGESTERONE
     Indication: Mixed anxiety and depressive disorder
     Dosage: 100 MILLIGRAM, QD, ONE EACH DAY (CONTINUOUSLY) WHILST USING TRANSDERMAL OESTROGEN
     Dates: start: 20211007

REACTIONS (2)
  - Haematoma [Recovered/Resolved]
  - Contusion [Recovered/Resolved]

NARRATIVE: CASE EVENT DATE: 20211001
